FAERS Safety Report 7479062-3 (Version None)
Quarter: 2011Q2

REPORT INFORMATION
  Report Type: 
  Country: None (occurrence: None)
  Receive Date: 20110513
  Receipt Date: 20110503
  Transmission Date: 20111010
  Serious: Yes (Hospitalization)
  Sender: FDA-Public Use
  Company Number: MX-SANOFI-AVENTIS-2011SA029058

PATIENT
  Age: 77 Year
  Sex: Male

DRUGS (4)
  1. DOCETAXEL [Suspect]
     Route: 041
     Dates: start: 20110310, end: 20110310
  2. DOCETAXEL [Suspect]
     Indication: PROSTATE CANCER
     Route: 041
     Dates: start: 20100701, end: 20100701
  3. ALL OTHER THERAPEUTIC PRODUCTS [Concomitant]
  4. BLINDED THERAPY [Suspect]
     Indication: PROSTATE CANCER
     Dosage: 14 COURSES
     Route: 048
     Dates: start: 20100701

REACTIONS (1)
  - CARDIAC DISORDER [None]
